FAERS Safety Report 8458324-7 (Version None)
Quarter: 2012Q2

REPORT INFORMATION
  Report Type: 
  Country: None (occurrence: None)
  Receive Date: 20120615
  Receipt Date: 20120607
  Transmission Date: 20120825
  Serious: Yes (Death)
  Sender: FDA-Public Use
  Company Number: DKLU1081774

PATIENT
  Age: 24 Decade
  Sex: Male

DRUGS (5)
  1. DILANTIN [Concomitant]
  2. SABRIL [Suspect]
     Indication: INFANTILE SPASMS
     Dosage: 75 MG, 2 IN 1 D, ORAL
     Route: 048
     Dates: start: 20120523
  3. TOPAMAX [Concomitant]
  4. KEPPRA [Concomitant]
  5. PHENOBARBITAL TAB [Concomitant]

REACTIONS (1)
  - DRUG INEFFECTIVE [None]
